FAERS Safety Report 10729047 (Version 1)
Quarter: 2015Q1

REPORT INFORMATION
  Report Type: Spontaneous
  Country: US (occurrence: None)
  Receive Date: 20150120
  Receipt Date: 20150120
  Transmission Date: 20150721
  Serious: Yes (Other)
  Sender: FDA-Public Use
  Company Number: None

PATIENT
  Age: 67 Year
  Sex: Female
  Weight: 73.94 kg

DRUGS (1)
  1. BENEFIBER [Suspect]
     Active Substance: STARCH, WHEAT
     Indication: GASTROINTESTINAL MOTILITY DISORDER
     Dosage: 2 TEASPOONS, THREE TIMES DAILY, TAKEN BY MOUTH
     Route: 048
     Dates: start: 20150109, end: 20150111

REACTIONS (1)
  - Blood pressure increased [None]

NARRATIVE: CASE EVENT DATE: 20150111
